FAERS Safety Report 5694405-9 (Version None)
Quarter: 2008Q2

REPORT INFORMATION
  Report Type: 
  Country: None (occurrence: None)
  Receive Date: 20080403
  Receipt Date: 20080403
  Transmission Date: 20081010
  Serious: Yes (Hospitalization)
  Sender: FDA-Public Use
  Company Number: None

PATIENT
  Sex: Female
  Weight: 67.9 kg

DRUGS (3)
  1. TOPOTECAN [Suspect]
     Dosage: 10.2 MG
  2. LYRICA [Concomitant]
  3. PERCOCET [Concomitant]

REACTIONS (4)
  - PAIN IN EXTREMITY [None]
  - PATHOLOGICAL FRACTURE [None]
  - SOFT TISSUE DISORDER [None]
  - SPINAL COLUMN STENOSIS [None]
